FAERS Safety Report 6124988-6 (Version None)
Quarter: 2009Q1

REPORT INFORMATION
  Report Type: 
  Country: None (occurrence: None)
  Receive Date: 20090319
  Receipt Date: 20090310
  Transmission Date: 20090719
  Serious: Yes (Other)
  Sender: FDA-Public Use
  Company Number: US-GILEAD-2009-0020823

PATIENT
  Age: 14 Year
  Sex: Female

DRUGS (1)
  1. VISTIDE [Suspect]

REACTIONS (1)
  - SQUAMOUS CELL CARCINOMA [None]
